FAERS Safety Report 5134495-5 (Version None)
Quarter: 2006Q4

REPORT INFORMATION
  Report Type: 
  Country: None (occurrence: None)
  Receive Date: 20061023
  Receipt Date: 20061023
  Transmission Date: 20070319
  Serious: Yes (Other)
  Sender: FDA-Public Use
  Company Number: None

PATIENT
  Sex: Female
  Weight: 64.8644 kg

DRUGS (13)
  1. BEVACIZUMAB [Suspect]
     Indication: COLON CANCER
     Dosage: SEE IMAGE
     Route: 042
     Dates: start: 20060906
  2. BEVACIZUMAB [Suspect]
     Indication: COLON CANCER
     Dosage: SEE IMAGE
     Route: 042
     Dates: start: 20060920
  3. GLEEVEC [Concomitant]
  4. CYTOXAN [Concomitant]
  5. VICODIN [Concomitant]
  6. IMODIUM [Concomitant]
  7. AMBIEN [Concomitant]
  8. PROTONIX [Concomitant]
  9. LYRICA [Concomitant]
  10. LOMOTIL [Concomitant]
  11. ZOFRAN [Concomitant]
  12. FENTANYL TRANSDERMAL SYSTEM [Concomitant]
  13. METHADONE HCL [Concomitant]

REACTIONS (8)
  - DISEASE RECURRENCE [None]
  - DRUG TOXICITY [None]
  - ENDOMETRIAL CANCER METASTATIC [None]
  - FISTULA [None]
  - HAEMATURIA [None]
  - METASTASIS [None]
  - URINARY TRACT INFECTION [None]
  - VAGINAL DISORDER [None]
